FAERS Safety Report 11697101 (Version 6)
Quarter: 2017Q4

REPORT INFORMATION
  Report Type: Spontaneous
  Country: US (occurrence: US)
  Receive Date: 20151104
  Receipt Date: 20171201
  Transmission Date: 20180320
  Serious: Yes (Hospitalization, Other)
  Sender: FDA-Public Use
  Company Number: US-009507513-1511USA000893

PATIENT
  Sex: Male
  Weight: 63.49 kg

DRUGS (5)
  1. FOSAMAX [Suspect]
     Active Substance: ALENDRONATE SODIUM
     Indication: OSTEOPOROSIS
     Dosage: 10 MG, QD
     Route: 048
     Dates: end: 20031126
  2. ALENDRONATE SODIUM. [Suspect]
     Active Substance: ALENDRONATE SODIUM
     Dosage: 70 MG, QW
     Route: 048
     Dates: start: 200803, end: 201206
  3. FOSAMAX [Suspect]
     Active Substance: ALENDRONATE SODIUM
     Indication: OSTEOPOROSIS
     Dosage: 70 MG, QW
     Route: 048
     Dates: start: 20031127, end: 20140423
  4. ALENDRONATE SODIUM. [Suspect]
     Active Substance: ALENDRONATE SODIUM
     Indication: OSTEOPOROSIS
     Dosage: 10 MG, QD
     Route: 048
     Dates: start: 19970922, end: 20031126
  5. ALENDRONATE SODIUM. [Suspect]
     Active Substance: ALENDRONATE SODIUM
     Indication: OSTEOPOROSIS
     Dosage: 70 MG, QW
     Route: 048
     Dates: start: 20031127, end: 20140423

REACTIONS (27)
  - Vitiligo [Unknown]
  - Shoulder arthroplasty [Unknown]
  - Pain in extremity [Not Recovered/Not Resolved]
  - Knee deformity [Unknown]
  - Libido decreased [Unknown]
  - Osteopenia [Unknown]
  - Osteoporosis [Unknown]
  - Femur fracture [Unknown]
  - Tooth extraction [Unknown]
  - Hip arthroplasty [Unknown]
  - Osteoarthritis [Unknown]
  - Head injury [Unknown]
  - Device material issue [Unknown]
  - Hypercalciuria [Unknown]
  - Hip arthroplasty [Unknown]
  - Erectile dysfunction [Unknown]
  - Head injury [Unknown]
  - Subdural haematoma [Unknown]
  - Osteonecrosis [Not Recovered/Not Resolved]
  - Femur fracture [Unknown]
  - Fracture malunion [Recovering/Resolving]
  - Intervertebral disc protrusion [Unknown]
  - Blood testosterone decreased [Unknown]
  - Osteonecrosis [Unknown]
  - Osteoporosis [Unknown]
  - Anogenital warts [Unknown]
  - Pain in extremity [Unknown]

NARRATIVE: CASE EVENT DATE: 1997
